FAERS Safety Report 9209630 (Version 1)
Quarter: 2013Q1

REPORT INFORMATION
  Report Type: Spontaneous
  Country: US (occurrence: None)
  Receive Date: 20120820
  Receipt Date: 20120820
  Transmission Date: 20140127
  Serious: No
  Sender: FDA-Public Use
  Company Number: 1000030497

PATIENT
  Sex: Female

DRUGS (4)
  1. VIIBRYD [Suspect]
     Indication: DEPRESSION
     Route: 048
  2. EFFEXOR(VENLAFAXINE HYDROCHLORIDE)(VENLAFAXINE HYDROCHLORIDE) [Concomitant]
  3. WELLBUTRIN(BUPROPION HYDROCHLORIDE)(BUPROPION HYDROCHLORIDE) [Concomitant]
  4. TRIEST (TRIEST) (TRIEST) [Concomitant]

REACTIONS (2)
  - Arthralgia [None]
  - Balance disorder [None]
